FAERS Safety Report 20446479 (Version 1)
Quarter: 2022Q1

REPORT INFORMATION
  Report Type: Other
  Country: US (occurrence: US)
  Receive Date: 20220208
  Receipt Date: 20220208
  Transmission Date: 20220423
  Serious: No
  Sender: FDA-Public Use
  Company Number: US-JUBILANT CADISTA PHARMACEUTICALS-2021JUB00084

PATIENT
  Age: 60 Year
  Sex: Female
  Weight: 90.703 kg

DRUGS (7)
  1. VALSARTAN [Suspect]
     Active Substance: VALSARTAN
     Indication: Hypertension
     Dosage: 80 MG, 2X/DAY
     Route: 048
     Dates: start: 20210220, end: 20210221
  2. ALPRAZOLAM [Concomitant]
     Active Substance: ALPRAZOLAM
  3. BUSPIRONE [Concomitant]
     Active Substance: BUSPIRONE HYDROCHLORIDE
  4. FLONASE [Concomitant]
     Active Substance: FLUTICASONE PROPIONATE
  5. ASMANEX [Concomitant]
     Active Substance: MOMETASONE FUROATE
  6. VITAMIN D [Concomitant]
     Active Substance: VITAMIN D NOS
  7. AZITHROMYCIN (Z-PAK) [Concomitant]
     Dosage: UNK
     Dates: end: 20210220

REACTIONS (7)
  - Flushing [Recovered/Resolved]
  - Chest discomfort [Recovered/Resolved]
  - Blood pressure increased [Recovered/Resolved]
  - Swollen tongue [Recovered/Resolved]
  - Product substitution issue [Recovered/Resolved]
  - Headache [Recovered/Resolved]
  - Dizziness [Recovered/Resolved]

NARRATIVE: CASE EVENT DATE: 20210220
